FAERS Safety Report 4836235-3 (Version None)
Quarter: 2005Q4

REPORT INFORMATION
  Report Type: 
  Country: None (occurrence: None)
  Receive Date: 20051123
  Receipt Date: 20051115
  Transmission Date: 20060501
  Serious: Yes (Other)
  Sender: FDA-Public Use
  Company Number: GB-JNJFOC-20051104203

PATIENT
  Age: 85 Year
  Sex: Female
  Weight: 70 kg

DRUGS (6)
  1. OXYBUTYNIN HYDROCHLORIDE [Suspect]
     Indication: INCONTINENCE
     Route: 048
  2. PERINDOPRIL [Concomitant]
     Route: 048
  3. TAMOXIFEN [Concomitant]
     Route: 048
  4. FRUSEMIDE [Concomitant]
     Route: 048
  5. CALCEOS [Concomitant]
     Route: 048
  6. CALCEOS [Concomitant]
     Route: 048

REACTIONS (2)
  - DIARRHOEA [None]
  - VOMITING [None]
